FAERS Safety Report 4902949-X (Version None)
Quarter: 2006Q1

REPORT INFORMATION
  Report Type: 
  Country: None (occurrence: None)
  Receive Date: 20060207
  Receipt Date: 20060126
  Transmission Date: 20060701
  Serious: Yes (Hospitalization)
  Sender: FDA-Public Use
  Company Number: US-BRISTOL-MYERS SQUIBB COMPANY-13261425

PATIENT
  Age: 41 Year
  Sex: Female
  Weight: 81 kg

DRUGS (6)
  1. COUMADIN [Suspect]
  2. KLONOPIN [Concomitant]
     Dates: start: 20060113
  3. LOVENOX [Concomitant]
     Dates: start: 20060125
  4. PROTONIX [Concomitant]
     Dates: start: 20060114
  5. AMBIEN [Concomitant]
     Dates: start: 20060113
  6. CLARITIN [Concomitant]

REACTIONS (3)
  - INTERNATIONAL NORMALISED RATIO DECREASED [None]
  - PNEUMONIA [None]
  - PULMONARY EMBOLISM [None]
